FAERS Safety Report 20863276 (Version 1)
Quarter: 2022Q2

REPORT INFORMATION
  Report Type: Spontaneous
  Country: US (occurrence: US)
  Receive Date: 20220523
  Receipt Date: 20220523
  Transmission Date: 20220721
  Serious: No
  Sender: FDA-Public Use
  Company Number: US-PFIZER INC-202200618819

PATIENT
  Age: 53 Year
  Sex: Female
  Weight: 86.18 kg

DRUGS (3)
  1. LIOTHYRONINE SODIUM [Suspect]
     Active Substance: LIOTHYRONINE SODIUM
     Indication: Thyroid disorder
     Dosage: 5 UG, 2X/DAY
     Route: 048
     Dates: start: 20220119, end: 20220413
  2. SYNTHROID [Concomitant]
     Active Substance: LEVOTHYROXINE SODIUM
     Indication: Thyroid disorder
     Dosage: UNK
     Route: 048
  3. SYNTHROID [Concomitant]
     Active Substance: LEVOTHYROXINE SODIUM
     Dosage: 75 UG, 1X/DAY
     Route: 048

REACTIONS (4)
  - Thyroid function test abnormal [Unknown]
  - Nervousness [Unknown]
  - Tri-iodothyronine increased [Unknown]
  - Off label use [Unknown]

NARRATIVE: CASE EVENT DATE: 20220119
